FAERS Safety Report 18396334 (Version 1)
Quarter: 2020Q4

REPORT INFORMATION
  Report Type: Spontaneous
  Country: US (occurrence: US)
  Receive Date: 20201019
  Receipt Date: 20201019
  Transmission Date: 20210114
  Serious: Yes (Other)
  Sender: FDA-Public Use
  Company Number: US-TEVA-2020-US-1838614

PATIENT
  Age: 69 Year
  Sex: Male

DRUGS (2)
  1. ATENOLOL TEVA [Suspect]
     Active Substance: ATENOLOL
     Indication: HYPERTENSION
     Dosage: DOSE: 50 MG DOSAGE ONCE IN THE MORNING AND ONCE AT NIGHT
     Route: 065
  2. ATENOLOL TEVA [Suspect]
     Active Substance: ATENOLOL
     Dosage: DOSE: 100MG AT NIGHT
     Route: 065

REACTIONS (3)
  - Blood pressure increased [Unknown]
  - Product physical issue [Unknown]
  - Drug ineffective [Unknown]
